FAERS Safety Report 5117973-4 (Version None)
Quarter: 2006Q3

REPORT INFORMATION
  Report Type: 
  Country: None (occurrence: None)
  Receive Date: 20060926
  Receipt Date: 20060912
  Transmission Date: 20061208
  Serious: Yes (Hospitalization, Other)
  Sender: FDA-Public Use
  Company Number: 2005JP002508

PATIENT
  Age: 72 Year
  Sex: Female
  Weight: 50.5 kg

DRUGS (18)
  1. TACROLIMUS CAPSULES(TACROLIMUS CAPSULES) CAPSULE [Suspect]
     Indication: RHEUMATOID ARTHRITIS
     Dosage: SEE IMAGE
     Route: 048
     Dates: start: 20050701, end: 20050714
  2. TACROLIMUS CAPSULES(TACROLIMUS CAPSULES) CAPSULE [Suspect]
     Indication: RHEUMATOID ARTHRITIS
     Dosage: SEE IMAGE
     Route: 048
     Dates: start: 20050715, end: 20050728
  3. TACROLIMUS CAPSULES(TACROLIMUS CAPSULES) CAPSULE [Suspect]
     Indication: RHEUMATOID ARTHRITIS
     Dosage: SEE IMAGE
     Route: 048
     Dates: start: 20050729
  4. PREDNISOLONE [Suspect]
     Indication: RHEUMATOID ARTHRITIS
     Dosage: SEE IMAGE
     Route: 048
     Dates: end: 20050724
  5. PREDNISOLONE [Suspect]
     Indication: RHEUMATOID ARTHRITIS
     Dosage: SEE IMAGE
     Route: 048
     Dates: start: 20050725, end: 20050821
  6. PREDNISOLONE [Suspect]
     Indication: RHEUMATOID ARTHRITIS
     Dosage: SEE IMAGE
     Route: 048
     Dates: start: 20050822, end: 20051002
  7. PREDNISOLONE [Suspect]
     Indication: RHEUMATOID ARTHRITIS
     Dosage: SEE IMAGE
     Route: 048
     Dates: start: 20051003
  8. LOXOPROFEN [Concomitant]
  9. VOLTAREN [Concomitant]
  10. AMLODIPINE BESYLATE [Concomitant]
  11. FAMOTIDINE [Concomitant]
  12. SELBEX (TEPRENONE) [Concomitant]
  13. SULFAMETHOXAZOLE + TRIMETHOPRIM [Concomitant]
  14. PANTOSIN (PANTETHINE) [Concomitant]
  15. KAMAG G (MAGNESIUM OXIDE) [Concomitant]
  16. FERROMIA (FERROUS CITRATE) [Concomitant]
  17. POSTERISAN [Concomitant]
  18. LAXOBERON (SODIUM PICOSULFATE) [Concomitant]

REACTIONS (8)
  - CONDITION AGGRAVATED [None]
  - DIABETES MELLITUS [None]
  - DYSKINESIA [None]
  - FALL [None]
  - FRACTURE [None]
  - HAEMORRHAGE [None]
  - PLATELET COUNT DECREASED [None]
  - TREMOR [None]
